FAERS Safety Report 15300932 (Version 6)
Quarter: 2019Q4

REPORT INFORMATION
  Report Type: Report from Study
  Country: IL (occurrence: IL)
  Receive Date: 20180821
  Receipt Date: 20191226
  Transmission Date: 20200122
  Serious: Yes (Hospitalization, Other)
  Sender: FDA-Public Use
  Company Number: PHHY2018IL075718

PATIENT
  Age: 1 Year
  Sex: Female
  Weight: 16.7 kg

DRUGS (11)
  1. VINBLASTINE [Concomitant]
     Active Substance: VINBLASTINE
     Indication: OPTIC GLIOMA
     Route: 065
  2. LEVETIRACETAM. [Concomitant]
     Active Substance: LEVETIRACETAM
     Indication: PRODUCT USED FOR UNKNOWN INDICATION
     Dosage: 400 MG, BID
     Route: 065
  3. TRAMETINIB [Suspect]
     Active Substance: TRAMETINIB
     Indication: OPTIC GLIOMA
     Dosage: 0.5 MG
     Route: 065
  4. AVASTIN [Concomitant]
     Active Substance: BEVACIZUMAB
     Indication: OPTIC GLIOMA
     Route: 065
  5. TRAMETINIB [Suspect]
     Active Substance: TRAMETINIB
     Dosage: 0.5 MG
     Route: 065
     Dates: start: 20191204
  6. TRAMETINIB [Suspect]
     Active Substance: TRAMETINIB
     Dosage: 0.5 MG
     Route: 065
     Dates: start: 20180807
  7. TRAMETINIB [Suspect]
     Active Substance: TRAMETINIB
     Dosage: 0.25 MG, QD
     Route: 048
     Dates: start: 20180702
  8. TPN [Suspect]
     Active Substance: AMINO ACIDS\DEXTROSE\ELECTROLYTES NOS\SOYBEAN OIL
     Indication: PRODUCT USED FOR UNKNOWN INDICATION
     Route: 065
  9. TRAMETINIB [Suspect]
     Active Substance: TRAMETINIB
     Dosage: 0.25 MG, QD
     Route: 065
     Dates: start: 20181104
  10. KEPPRA [Concomitant]
     Active Substance: LEVETIRACETAM
     Indication: PRODUCT USED FOR UNKNOWN INDICATION
     Dosage: UNK
     Route: 065
     Dates: start: 20170517
  11. VINCRISTINE [Concomitant]
     Active Substance: VINCRISTINE
     Indication: OPTIC GLIOMA
     Route: 065

REACTIONS (12)
  - Somnolence [Unknown]
  - Herpes oesophagitis [Recovering/Resolving]
  - Oesophageal haemorrhage [Unknown]
  - Haematochezia [Recovered/Resolved]
  - Stomatitis [Unknown]
  - Asthenia [Unknown]
  - Malignant neoplasm progression [Unknown]
  - Blood creatine phosphokinase increased [Recovering/Resolving]
  - Device related sepsis [Recovered/Resolved]
  - Leukopenia [Unknown]
  - Aeromonas infection [Unknown]
  - Dysentery [Unknown]

NARRATIVE: CASE EVENT DATE: 20180821
